FAERS Safety Report 18518757 (Version 2)
Quarter: 2020Q4

REPORT INFORMATION
  Report Type: Spontaneous
  Country: US (occurrence: US)
  Receive Date: 20201118
  Receipt Date: 20201218
  Transmission Date: 20210114
  Serious: Yes (Other)
  Sender: FDA-Public Use
  Company Number: US-FRESENIUS KABI-FK202012176

PATIENT
  Sex: Female

DRUGS (1)
  1. FULVESTRANT INJECTION [Suspect]
     Active Substance: FULVESTRANT
     Indication: PRODUCT USED FOR UNKNOWN INDICATION
     Route: 065
     Dates: end: 202009

REACTIONS (4)
  - Skin lesion [Recovering/Resolving]
  - Drug resistance [Recovering/Resolving]
  - Neoplasm malignant [Unknown]
  - Metastasis [Unknown]

NARRATIVE: CASE EVENT DATE: 202009
